FAERS Safety Report 10457772 (Version 2)
Quarter: 2014Q3

REPORT INFORMATION
  Report Type: Spontaneous
  Country: US (occurrence: US)
  Receive Date: 20140916
  Receipt Date: 20140916
  Transmission Date: 20150326
  Serious: Yes (Hospitalization)
  Sender: FDA-Public Use
  Company Number: US-GLAXOSMITHKLINE-A0797862A

PATIENT
  Sex: Male

DRUGS (4)
  1. AVANDIA [Suspect]
     Active Substance: ROSIGLITAZONE MALEATE
     Indication: TYPE 2 DIABETES MELLITUS
     Route: 048
     Dates: start: 20020106, end: 200506
  2. ASPIRIN. [Concomitant]
     Active Substance: ASPIRIN
  3. BUSPAR [Concomitant]
     Active Substance: BUSPIRONE HYDROCHLORIDE
  4. TRICOR [Concomitant]
     Active Substance: FENOFIBRATE

REACTIONS (4)
  - Arteriospasm coronary [Unknown]
  - Acute myocardial infarction [Not Recovered/Not Resolved]
  - Coronary artery embolism [Unknown]
  - Coronary artery disease [Unknown]
